FAERS Safety Report 24623925 (Version 1)
Quarter: 2024Q4

REPORT INFORMATION
  Report Type: Spontaneous
  Country: US (occurrence: None)
  Receive Date: 20241115
  Receipt Date: 20241115
  Transmission Date: 20250114
  Serious: Yes (Hospitalization)
  Sender: Public
  Company Number: None

PATIENT
  Age: 62 Year
  Sex: Male
  Weight: 121 kg

DRUGS (4)
  1. AMOXICILLIN [Suspect]
     Active Substance: AMOXICILLIN
     Indication: Antibiotic prophylaxis
     Dosage: 500.00 MG 3 TIMES A DAY ORAL
     Route: 048
     Dates: start: 20240913, end: 20240913
  2. LIDOCAINE HYDROCHLORIDE [Suspect]
     Active Substance: LIDOCAINE HYDROCHLORIDE
     Indication: Pain
     Dates: start: 20240913, end: 20240913
  3. NORCO [Suspect]
     Active Substance: ACETAMINOPHEN\HYDROCODONE BITARTRATE
  4. IBUPROFEN [Suspect]
     Active Substance: IBUPROFEN

REACTIONS (7)
  - Angioedema [None]
  - Swelling face [None]
  - Lip swelling [None]
  - Swollen tongue [None]
  - Wheezing [None]
  - Drooling [None]
  - Dyspnoea [None]

NARRATIVE: CASE EVENT DATE: 20240913
